FAERS Safety Report 5360189-7 (Version None)
Quarter: 2007Q2

REPORT INFORMATION
  Report Type: 
  Country: None (occurrence: None)
  Receive Date: 20070618
  Receipt Date: 20070614
  Transmission Date: 20071010
  Serious: Yes (Death)
  Sender: FDA-Public Use
  Company Number: PHBS2007NL09932

PATIENT

DRUGS (3)
  1. EXELON [Suspect]
     Route: 048
  2. MUSCLE RELAXANTS [Suspect]
  3. PAVULON [Suspect]
     Route: 065

REACTIONS (1)
  - EUTHANASIA [None]
